FAERS Safety Report 9207829 (Version 1)
Quarter: 2013Q2

REPORT INFORMATION
  Report Type: Report from Study
  Country: JP (occurrence: JP)
  Receive Date: 20130403
  Receipt Date: 20130403
  Transmission Date: 20140414
  Serious: Yes (Other)
  Sender: FDA-Public Use
  Company Number: JP-GLAXOSMITHKLINE-B0604938A

PATIENT
  Age: 60 Year
  Sex: Female
  Weight: 43 kg

DRUGS (10)
  1. TYKERB [Suspect]
     Indication: BREAST CANCER
     Route: 048
     Dates: start: 20090812, end: 20091013
  2. TYKERB [Suspect]
     Indication: BREAST CANCER
     Route: 048
     Dates: start: 20091111, end: 20091229
  3. TYKERB [Suspect]
     Indication: BREAST CANCER
     Route: 048
     Dates: start: 20100113, end: 20100122
  4. TYKERB [Suspect]
     Indication: BREAST CANCER
     Route: 048
     Dates: start: 20100210, end: 20100324
  5. XELODA [Suspect]
     Indication: PRODUCT USED FOR UNKNOWN INDICATION
     Route: 048
     Dates: start: 20090812, end: 20091013
  6. XELODA [Suspect]
     Indication: PRODUCT USED FOR UNKNOWN INDICATION
     Route: 048
     Dates: start: 20091111, end: 20091229
  7. XELODA [Suspect]
     Indication: PRODUCT USED FOR UNKNOWN INDICATION
     Route: 048
     Dates: start: 20100113, end: 20100122
  8. XELODA [Suspect]
     Indication: PRODUCT USED FOR UNKNOWN INDICATION
     Route: 048
     Dates: start: 20100210, end: 20100324
  9. LOXOPROFEN SODIUM [Concomitant]
     Indication: METASTATIC PAIN
     Route: 048
     Dates: start: 20091021, end: 20091113
  10. MUCOSTA [Concomitant]
     Route: 048
     Dates: start: 20091021, end: 20091103

REACTIONS (5)
  - Acute sinusitis [Recovered/Resolved]
  - Duodenal ulcer [Recovering/Resolving]
  - Palmar-plantar erythrodysaesthesia syndrome [Recovered/Resolved]
  - Palmar-plantar erythrodysaesthesia syndrome [Recovered/Resolved]
  - Hepatic function abnormal [Not Recovered/Not Resolved]
